FAERS Safety Report 23108424 (Version 4)
Quarter: 2025Q4

REPORT INFORMATION
  Report Type: Spontaneous
  Country: EU (occurrence: EU)
  Receive Date: 20231026
  Receipt Date: 20251107
  Transmission Date: 20260118
  Serious: Yes (Hospitalization, Other)
  Sender: ALEXION PHARMACEUTICALS
  Company Number: None

PATIENT
  Age: 58 Year
  Sex: Female

DRUGS (30)
  1. TREMELIMUMAB [Suspect]
     Active Substance: TREMELIMUMAB
     Indication: Non-small cell lung cancer
     Dosage: 1 MG/KG, CYCLIC (ONCE EVERY FOUR WEEKS), FREQUENCY: Q_CYCLE
     Dates: start: 20161104, end: 20161104
  2. TREMELIMUMAB [Suspect]
     Active Substance: TREMELIMUMAB
     Dosage: 1 MG/KG, CYCLIC (ONCE EVERY FOUR WEEKS), FREQUENCY: Q_CYCLE
     Dates: start: 20161130, end: 20161130
  3. DURVALUMAB [Suspect]
     Active Substance: DURVALUMAB
     Indication: Non-small cell lung cancer
     Dosage: 20 MG/KG, CYCLIC (ONCE EVERY FOUR WEEKS), FREQUENCY: Q_CYCLE
     Dates: start: 20161104, end: 20161104
  4. DURVALUMAB [Suspect]
     Active Substance: DURVALUMAB
     Dosage: 20 MG/KG, CYCLIC (ONCE EVERY FOUR WEEKS), FREQUENCY: Q_CYCLE
     Dates: start: 20161130, end: 20161130
  5. VENLAFAXINE HCL [Suspect]
     Active Substance: VENLAFAXINE HYDROCHLORIDE
     Indication: Depression
     Dosage: 75 MG, UNK
  6. VENLAFAXINE HCL [Suspect]
     Active Substance: VENLAFAXINE HYDROCHLORIDE
     Dosage: 225 MG, 1X/DAY
     Dates: start: 20161128
  7. VENLAFAXINE HCL [Suspect]
     Active Substance: VENLAFAXINE HYDROCHLORIDE
     Dosage: 150 MG, 1X/DAY
     Dates: start: 20161229
  8. VENLAFAXINE HCL [Suspect]
     Active Substance: VENLAFAXINE HYDROCHLORIDE
     Dosage: 150 MG, 1X/DAY
     Dates: start: 20160907
  9. AMITRIPTYLINE HYDROCHLORIDE [Concomitant]
     Active Substance: AMITRIPTYLINE HYDROCHLORIDE
     Indication: Depression
     Dosage: 25.00 MG BID
     Dates: start: 20160928
  10. BISACODYL [Concomitant]
     Active Substance: BISACODYL
     Indication: Constipation
     Dosage: 2.00 CAPSULE QD
     Dates: start: 20160928
  11. CLOBAZAM [Concomitant]
     Active Substance: CLOBAZAM
     Indication: Depression
     Dosage: 20.00 MG PRN
  12. FENTANYL [Concomitant]
     Active Substance: FENTANYL
     Indication: Pain
     Dosage: 50.00 UG EVERY 72H
  13. FENTANYL [Concomitant]
     Active Substance: FENTANYL
     Dosage: 50.00 UG EVERY 72H
  14. GABAPENTIN [Concomitant]
     Active Substance: GABAPENTIN
     Indication: Pain
     Dosage: 400.00 MG TID
     Dates: start: 20160928
  15. GABAPENTIN [Concomitant]
     Active Substance: GABAPENTIN
     Dosage: 400.00 MG TID
     Dates: start: 20160928
  16. LACTULOSE [Concomitant]
     Active Substance: LACTULOSE
     Indication: Constipation
     Dosage: 1.00 SPOON TID
     Dates: start: 20160928
  17. LACTULOSE [Concomitant]
     Active Substance: LACTULOSE
     Dosage: 1.00 SPOON TID
     Dates: start: 20160928
  18. METHYLPREDNISOLONE [Concomitant]
     Active Substance: METHYLPREDNISOLONE
     Indication: Pain
     Dosage: 0.50 CAPSULE QD
     Dates: start: 20161021
  19. MIRTAZAPINE [Concomitant]
     Active Substance: MIRTAZAPINE
     Indication: Depression
     Dosage: 30.00 MG QD
     Dates: start: 20160907
  20. MORPHINE SULFATE [Concomitant]
     Active Substance: MORPHINE SULFATE
     Indication: Pain
     Dosage: 20.00 MG PRN, FREQUENCY: INT
  21. MORPHINE SULFATE [Concomitant]
     Active Substance: MORPHINE SULFATE
     Dosage: 20.00 MG PRN
  22. NYSTATIN [Concomitant]
     Active Substance: NYSTATIN
     Indication: Mucosal inflammation
     Dosage: 6.00 ML QID
     Dates: start: 20161117
  23. PANTOPRAZOLE SODIUM [Concomitant]
     Active Substance: PANTOPRAZOLE SODIUM
     Indication: Prophylaxis
     Dosage: 40.00 MG QD
     Dates: start: 20160928
  24. Sene [Concomitant]
     Indication: Constipation
     Dosage: 2.00 CAPSULE QD
     Dates: start: 20160928
  25. SODIUM CITRATE [Concomitant]
     Active Substance: SODIUM CITRATE
     Indication: Constipation
     Dosage: 1.00 MICROENEMA PRN
  26. Sodium Laurilsulfate [Concomitant]
     Indication: Constipation
     Dosage: 1.00 ENEMA PRN, FREQUENCY: Q_CYCLE
  27. SUCRALFATE [Concomitant]
     Active Substance: SUCRALFATE
     Indication: Prophylaxis
     Dosage: 1.00 SACHET QID
     Dates: start: 20160928
  28. METHIMAZOLE [Concomitant]
     Active Substance: METHIMAZOLE
     Indication: Thyroid cyst
     Dosage: 5.00 MG QD
     Dates: start: 20160907
  29. DURVALUMAB [Suspect]
     Active Substance: DURVALUMAB
     Dosage: 20 MILLIGRAM, Q4W,CYCLIC.
     Dates: start: 20161130, end: 20161130
  30. DURVALUMAB [Suspect]
     Active Substance: DURVALUMAB
     Dosage: 20 MILLIGRAM, Q4W,CYCLIC.
     Dates: start: 20161104, end: 20161104

REACTIONS (1)
  - Drug-induced liver injury [Not Recovered/Not Resolved]

NARRATIVE: CASE EVENT DATE: 20161229
